FAERS Safety Report 13666270 (Version 1)
Quarter: 2017Q2

REPORT INFORMATION
  Report Type: Spontaneous
  Country: US (occurrence: US)
  Receive Date: 20170619
  Receipt Date: 20170619
  Transmission Date: 20170830
  Serious: No
  Sender: FDA-Public Use
  Company Number: US-ROCHE-1448861

PATIENT
  Sex: Female

DRUGS (1)
  1. XELODA [Suspect]
     Active Substance: CAPECITABINE
     Indication: NEOPLASM MALIGNANT
     Dosage: 14 DAYS ON 7 DAYS OFF
     Route: 048
     Dates: start: 20140728

REACTIONS (7)
  - Skin exfoliation [Unknown]
  - Nail disorder [Unknown]
  - Inappropriate schedule of drug administration [Unknown]
  - Fatigue [Unknown]
  - Dry skin [Unknown]
  - Onychomadesis [Unknown]
  - Peripheral swelling [Unknown]
